FAERS Safety Report 23904016 (Version 4)
Quarter: 2025Q3

REPORT INFORMATION
  Report Type: Report from Study
  Country: KR (occurrence: KR)
  Receive Date: 20240527
  Receipt Date: 20250922
  Transmission Date: 20251020
  Serious: Yes (Hospitalization, Other)
  Sender: CELLTRION
  Company Number: KR-CELLTRION INC.-2024KR011669

PATIENT

DRUGS (45)
  1. INFLIXIMAB-DYYB [Suspect]
     Active Substance: INFLIXIMAB-DYYB
     Indication: Colitis ulcerative
     Route: 058
     Dates: start: 20240319
  2. INFLIXIMAB-DYYB [Suspect]
     Active Substance: INFLIXIMAB-DYYB
     Route: 058
     Dates: start: 20240509
  3. INFLIXIMAB-DYYB [Suspect]
     Active Substance: INFLIXIMAB-DYYB
     Route: 058
     Dates: start: 20250306
  4. INFLIXIMAB-DYYB [Suspect]
     Active Substance: INFLIXIMAB-DYYB
     Route: 058
     Dates: start: 20250813
  5. INFLIXIMAB [Suspect]
     Active Substance: INFLIXIMAB
     Indication: Colitis ulcerative
     Route: 042
     Dates: start: 20240201
  6. INFLIXIMAB [Suspect]
     Active Substance: INFLIXIMAB
     Route: 042
     Dates: start: 20240215
  7. DIETARY SUPPLEMENT\HERBALS\MILK THISTLE [Concomitant]
     Active Substance: MILK THISTLE
     Indication: Liver function test increased
     Route: 048
     Dates: start: 20240326, end: 20240515
  8. DIETARY SUPPLEMENT\HERBALS\MILK THISTLE [Concomitant]
     Active Substance: MILK THISTLE
     Route: 048
     Dates: start: 20240328
  9. DIETARY SUPPLEMENT\HERBALS\MILK THISTLE [Concomitant]
     Active Substance: MILK THISTLE
     Route: 048
     Dates: start: 20241101
  10. PENNEL [ALLIUM SATIVUM OIL] [Concomitant]
     Indication: Liver function test increased
     Route: 048
     Dates: start: 20240326, end: 20240528
  11. PENNEL [ALLIUM SATIVUM OIL] [Concomitant]
     Indication: Abdominal pain
     Route: 048
     Dates: start: 20240517, end: 20240529
  12. PENNEL [ALLIUM SATIVUM OIL] [Concomitant]
     Route: 048
     Dates: start: 20250204
  13. ORAFANG [Concomitant]
     Indication: Premedication
     Route: 048
     Dates: start: 20240514, end: 20240515
  14. ORAFANG [Concomitant]
     Indication: Colonoscopy
     Route: 048
     Dates: start: 20250819, end: 20250820
  15. NEXIUM I.V. [Concomitant]
     Active Substance: ESOMEPRAZOLE SODIUM
     Indication: Gastrointestinal disorder prophylaxis
     Route: 042
     Dates: start: 20240515, end: 20240518
  16. NEXIUM I.V. [Concomitant]
     Active Substance: ESOMEPRAZOLE SODIUM
     Route: 042
     Dates: start: 20250318, end: 20250320
  17. GASOCOL [Concomitant]
     Indication: Abdominal pain
     Route: 048
     Dates: start: 20240517, end: 20240519
  18. FLOSPAN [Concomitant]
     Indication: Abdominal pain
     Route: 048
     Dates: start: 20240517, end: 20240529
  19. TRIMEBUTINE [Concomitant]
     Active Substance: TRIMEBUTINE
     Indication: Abdominal pain
     Route: 048
     Dates: start: 20240521, end: 20240529
  20. ERDOSTEINE [Concomitant]
     Active Substance: ERDOSTEINE
     Indication: Abdominal pain
     Route: 048
     Dates: start: 20240517, end: 20240529
  21. L-TIRIZINE [Concomitant]
     Indication: Abdominal pain
     Route: 048
     Dates: start: 20240517, end: 20240529
  22. CEFDITOREN PIVOXIL [Concomitant]
     Active Substance: CEFDITOREN PIVOXIL
     Indication: Oropharyngeal pain
     Route: 048
     Dates: start: 20240521, end: 20240529
  23. K CONTIN CONTINUS [Concomitant]
     Indication: Blood potassium decreased
     Route: 048
     Dates: start: 20240521, end: 20240529
  24. BENZETHONIUM CHLORIDE [Concomitant]
     Active Substance: BENZETHONIUM CHLORIDE
     Indication: Oropharyngeal pain
     Dates: start: 20240521, end: 20240529
  25. SYNERJET [Concomitant]
     Indication: Oropharyngeal pain
     Route: 048
     Dates: start: 20240521
  26. TACENOL [Concomitant]
     Indication: Oropharyngeal pain
     Route: 048
     Dates: start: 20240520, end: 20240520
  27. CAROL-F [Concomitant]
     Indication: Oropharyngeal pain
     Route: 048
     Dates: start: 20240521, end: 20240521
  28. TANDOL [Concomitant]
     Indication: Myalgia
     Route: 042
     Dates: start: 20240515, end: 20240519
  29. TANDOL [Concomitant]
     Route: 042
     Dates: start: 20250318, end: 20250320
  30. CHLORPHENIRAMINE MALEATE HUONS [Concomitant]
     Indication: Pruritus
     Route: 042
     Dates: start: 20240518, end: 20240518
  31. ALVERIX [Concomitant]
     Indication: Abdominal pain
     Route: 048
     Dates: start: 20240329, end: 20240923
  32. ALVERIX [Concomitant]
     Indication: Myalgia
     Route: 048
     Dates: start: 20240903
  33. ALVERIX [Concomitant]
     Dates: start: 20240528, end: 20241202
  34. FLOSPAN D [Concomitant]
     Indication: Abdominal pain
     Route: 048
     Dates: start: 20240329
  35. FLOSPAN D [Concomitant]
     Indication: Gastrointestinal disorder prophylaxis
     Route: 048
     Dates: start: 20240903, end: 20240923
  36. ESTRADIOL VALERATE [Concomitant]
     Active Substance: ESTRADIOL VALERATE
     Indication: Menopausal symptoms
     Route: 048
     Dates: start: 20240909
  37. TGFENON [Concomitant]
     Indication: Hyperlipidaemia
     Route: 048
     Dates: start: 20240809
  38. TALEAJE [Concomitant]
     Indication: Radiculopathy
     Route: 048
     Dates: start: 20250210
  39. TALEAJE [Concomitant]
     Indication: Patellofemoral pain syndrome
  40. ENTELON [Concomitant]
     Indication: Varicose vein
     Route: 048
     Dates: start: 20241002
  41. NEXIUM I.V. [Concomitant]
     Active Substance: ESOMEPRAZOLE SODIUM
     Indication: Gastrointestinal disorder prophylaxis
     Route: 048
     Dates: start: 20250321
  42. METRONIDAZOLE [Concomitant]
     Active Substance: METRONIDAZOLE
     Indication: Xerosis
     Route: 061
     Dates: start: 20241002
  43. ELIDEL [Concomitant]
     Active Substance: PIMECROLIMUS
     Indication: Xerosis
     Route: 061
     Dates: start: 20241002
  44. BUKWANG MIDAZOLAM [Concomitant]
     Indication: Colonoscopy
     Route: 042
     Dates: start: 20250820, end: 20250820
  45. HANA PETHIDINE HCL [Concomitant]
     Indication: Colonoscopy
     Route: 042
     Dates: start: 20250820, end: 20250820

REACTIONS (7)
  - Colitis ulcerative [Recovering/Resolving]
  - Hypokalaemia [Recovered/Resolved]
  - Gastroenteritis [Recovered/Resolved]
  - Salmonellosis [Recovering/Resolving]
  - Norovirus infection [Recovering/Resolving]
  - Hypotension [Recovering/Resolving]
  - Overdose [Unknown]

NARRATIVE: CASE EVENT DATE: 20240509
